FAERS Safety Report 8595932-7 (Version None)
Quarter: 2012Q3

REPORT INFORMATION
  Report Type: 
  Country: None (occurrence: None)
  Receive Date: 20120815
  Receipt Date: 20120730
  Transmission Date: 20120928
  Serious: No
  Sender: FDA-Public Use
  Company Number: US-ASTRAZENECA-2012SE53792

PATIENT
  Sex: Male
  Weight: 63 kg

DRUGS (4)
  1. CRESTOR [Suspect]
     Indication: TYPE IIA HYPERLIPIDAEMIA
     Route: 048
  2. LIPITOR [Suspect]
     Indication: TYPE IIA HYPERLIPIDAEMIA
     Route: 065
  3. CRESTOR [Suspect]
     Route: 048
  4. ASPIRIN [Concomitant]

REACTIONS (22)
  - EXERCISE TOLERANCE DECREASED [None]
  - DECREASED APPETITE [None]
  - NECK PAIN [None]
  - PAIN IN EXTREMITY [None]
  - ABDOMINAL DISTENSION [None]
  - HYPOAESTHESIA [None]
  - FLATULENCE [None]
  - NEUROLOGICAL SYMPTOM [None]
  - ARTHRALGIA [None]
  - MYALGIA [None]
  - RASH [None]
  - MUSCLE SPASMS [None]
  - DRUG DOSE OMISSION [None]
  - OFF LABEL USE [None]
  - ASTHENIA [None]
  - LIPIDS INCREASED [None]
  - FIBROMYALGIA [None]
  - MUSCLE ATROPHY [None]
  - BALANCE DISORDER [None]
  - BACK PAIN [None]
  - GAIT DISTURBANCE [None]
  - ABDOMINAL DISCOMFORT [None]
